FAERS Safety Report 7301375-6 (Version None)
Quarter: 2011Q1

REPORT INFORMATION
  Report Type: 
  Country: None (occurrence: None)
  Receive Date: 20110218
  Receipt Date: 20110216
  Transmission Date: 20110831
  Serious: Yes (Life-Threatening, Hospitalization, Other)
  Sender: FDA-Public Use
  Company Number: GB-B.I. PHARMACEUTICALS,INC./RIDGEFIELD-2011-UK-00152UK

PATIENT
  Age: 61 Year
  Sex: Female

DRUGS (9)
  1. ANASTROZOLE [Suspect]
     Indication: BREAST CANCER
     Dosage: 1 MG
     Route: 048
     Dates: end: 20100101
  2. ATORVASTATIN [Suspect]
  3. LERCANIDIPINE [Suspect]
  4. BENDROFLUMETHIAZIDE [Suspect]
     Indication: HYPERTENSION
     Dosage: 2.5 MG
     Route: 048
  5. RAMIPRIL [Suspect]
  6. EXEMESTANE [Suspect]
     Indication: BREAST CANCER
     Dosage: 25 MG
     Dates: start: 20100101
  7. AMOXICILLIN [Concomitant]
  8. ATROVENT [Suspect]
  9. PREDNISOLONE [Concomitant]

REACTIONS (1)
  - HYPONATRAEMIA [None]
